FAERS Safety Report 6540621-3 (Version None)
Quarter: 2010Q1

REPORT INFORMATION
  Report Type: 
  Country: None (occurrence: None)
  Receive Date: 20100112
  Receipt Date: 20091016
  Transmission Date: 20100710
  Serious: No
  Sender: FDA-Public Use
  Company Number: 2009-00675

PATIENT
  Age: 33 Year
  Sex: Male
  Weight: 70.3075 kg

DRUGS (1)
  1. COLD REMEDY NASAL GEL [Suspect]
     Dosage: 2-3 X/DAY - 3 DAYS; 1 1/2 YR AGO- 3 DAYS

REACTIONS (1)
  - ANOSMIA [None]
